FAERS Safety Report 5158195-0 (Version None)
Quarter: 2006Q4

REPORT INFORMATION
  Report Type: 
  Country: None (occurrence: None)
  Receive Date: 20061120
  Receipt Date: 20061120
  Transmission Date: 20070319
  Serious: No
  Sender: FDA-Public Use
  Company Number: None

PATIENT

DRUGS (12)
  1. PEGASPARGASE [Suspect]
  2. DEXAMETHASONE [Concomitant]
  3. TRIMETHOPRIM + SULFAMETHOXAZOLE [Concomitant]
  4. FLUCONAZOLE [Concomitant]
  5. LANSOPRAZOLE [Concomitant]
  6. LACTULOSE [Concomitant]
  7. POLYETHYLENE GLYCOL [Concomitant]
  8. DOXORUBICIN HCL [Concomitant]
  9. VINCRISTINE [Concomitant]
  10. METHOTREXATE [Concomitant]
  11. DOLASETRON [Concomitant]
  12. MERCAPTOPURINE [Concomitant]

REACTIONS (1)
  - THROMBOSIS [None]
